FAERS Safety Report 8420624 (Version 2)
Quarter: 2012Q4

REPORT INFORMATION
  Report Type: Report from Study
  Country: US (occurrence: US)
  Receive Date: 20120222
  Receipt Date: 20121105
  Transmission Date: 20130627
  Serious: Yes (Other)
  Sender: FDA-Public Use
  Company Number: US-BRISTOL-MYERS SQUIBB COMPANY-16402356

PATIENT
  Age: 28 Year
  Sex: Male
  Weight: 90 kg

DRUGS (2)
  1. IPILIMUMAB [Suspect]
     Indication: MALIGNANT MELANOMA
     Dosage: last dose: 17jan12 10mg/kg every 3 weeks
     Route: 042
     Dates: start: 20120117
  2. COMPAZINE [Concomitant]

REACTIONS (1)
  - Pyrexia [Recovered/Resolved]
